FAERS Safety Report 9479151 (Version 2)
Quarter: 2013Q3

REPORT INFORMATION
  Report Type: Report from Study
  Country: ZA (occurrence: ZA)
  Receive Date: 20130827
  Receipt Date: 20130827
  Transmission Date: 20140515
  Serious: Yes (Hospitalization, Other)
  Sender: FDA-Public Use
  Company Number: ZA-BRISTOL-MYERS SQUIBB COMPANY-16353575

PATIENT
  Age: 56 Year
  Sex: Female

DRUGS (3)
  1. WARFARIN SODIUM [Suspect]
     Indication: EMBOLISM
     Dosage: INTERRUPTED:25DEC2011, RESTARTED:02JAN12:8.8MG?6MG/D
     Route: 048
     Dates: start: 20111123
  2. ENOXAPARIN SODIUM [Suspect]
     Indication: EMBOLISM
     Dosage: INTERRUPTED:30NOV2011.
     Route: 058
     Dates: start: 20111123
  3. PLACEBO [Suspect]
     Indication: EMBOLISM
     Dosage: APIX:23NOV11-26NOV11,RESTARTED:2JAN12.?WARF:23NOV11-25DEC11,RESTARTED:2JAN12.?EXOP:23NOV11-30NOV11
     Route: 048
     Dates: start: 20111123

REACTIONS (5)
  - Vaginal haemorrhage [Recovered/Resolved]
  - Anaemia [Recovered/Resolved]
  - Cardiac failure [Recovered/Resolved]
  - Ascites [Recovered/Resolved]
  - Device related infection [Recovered/Resolved]
